FAERS Safety Report 5947107-5 (Version None)
Quarter: 2008Q4

REPORT INFORMATION
  Report Type: 
  Country: None (occurrence: None)
  Receive Date: 20081110
  Receipt Date: 20081106
  Transmission Date: 20090506
  Serious: No
  Sender: FDA-Public Use
  Company Number: ES-PFIZER INC-2007095794

PATIENT
  Age: 69 Year
  Sex: Male

DRUGS (3)
  1. CELECOXIB [Suspect]
     Indication: PROSTATE CANCER
  2. ESTRACYT [Suspect]
     Indication: PROSTATE CANCER
  3. DOCETAXEL [Suspect]
     Indication: PROSTATE CANCER

REACTIONS (1)
  - NO ADVERSE EVENT [None]
